FAERS Safety Report 6844957-8 (Version None)
Quarter: 2010Q3

REPORT INFORMATION
  Report Type: 
  Country: None (occurrence: None)
  Receive Date: 20100715
  Receipt Date: 20100707
  Transmission Date: 20110219
  Serious: Yes (Hospitalization)
  Sender: FDA-Public Use
  Company Number: US-AMGEN-KDC408047

PATIENT
  Sex: Female
  Weight: 106.7 kg

DRUGS (4)
  1. ETANERCEPT [Suspect]
     Indication: PSORIASIS
     Route: 058
     Dates: start: 20100329, end: 20100422
  2. ETANERCEPT - NON-AMGEN IMP (METHOTREXATE - BLINDED) [Suspect]
     Route: 048
     Dates: start: 20100329, end: 20100421
  3. HUMULIN R [Concomitant]
  4. HYDROCODONE [Concomitant]

REACTIONS (1)
  - MYOCARDIAL INFARCTION [None]
